FAERS Safety Report 5262249-8 (Version None)
Quarter: 2007Q1

REPORT INFORMATION
  Report Type: 
  Country: None (occurrence: None)
  Receive Date: 20070312
  Receipt Date: 20070307
  Transmission Date: 20070707
  Serious: Yes (Hospitalization)
  Sender: FDA-Public Use
  Company Number: CH-BAYER-200611975GDS

PATIENT
  Age: 75 Year
  Sex: Male
  Weight: 69 kg

DRUGS (10)
  1. SORAFENIB [Suspect]
     Indication: RENAL CELL CARCINOMA STAGE UNSPECIFIED
     Dosage: TOTAL DAILY DOSE: 800 MG
     Route: 048
     Dates: start: 20060512, end: 20060514
  2. SORAFENIB [Suspect]
     Dosage: TOTAL DAILY DOSE: 800 MG
     Route: 048
     Dates: start: 20060414, end: 20060512
  3. TRAMADOL HCL [Concomitant]
     Indication: ABDOMINAL PAIN
     Route: 048
     Dates: start: 20060310
  4. ZOLPIDEM TARTRATE [Concomitant]
     Indication: INSOMNIA
     Route: 048
     Dates: start: 20060310
  5. TAVANIC [Concomitant]
     Indication: INFECTION PROPHYLAXIS
     Route: 048
     Dates: start: 20060310
  6. TENORMIN [Concomitant]
     Indication: ARRHYTHMIA
     Route: 048
     Dates: start: 20040629
  7. PLAVIX [Concomitant]
     Indication: THROMBOSIS PROPHYLAXIS
     Route: 048
     Dates: start: 20050222
  8. PREDNISONE [Concomitant]
     Indication: ROUTINE HEALTH MAINTENANCE
     Route: 048
     Dates: start: 20040729
  9. NEXIUM [Concomitant]
     Indication: PROPHYLAXIS AGAINST GASTROINTESTINAL ULCER
     Route: 048
     Dates: start: 20040729
  10. DAFALGAN [Concomitant]
     Indication: ABDOMINAL PAIN
     Route: 048
     Dates: start: 20051028

REACTIONS (2)
  - ABDOMINAL PAIN [None]
  - DYSPNOEA [None]
